FAERS Safety Report 6174385-2 (Version None)
Quarter: 2009Q2

REPORT INFORMATION
  Report Type: 
  Country: None (occurrence: None)
  Receive Date: 20090430
  Receipt Date: 20090420
  Transmission Date: 20091009
  Serious: Yes (Hospitalization)
  Sender: FDA-Public Use
  Company Number: US-ABBOTT-09P-163-0569090-00

PATIENT
  Sex: Female
  Weight: 62.198 kg

DRUGS (3)
  1. LEVOTHYROXINE SODIUM [Suspect]
     Indication: HYPOTHYROIDISM
     Dates: start: 19970101, end: 20090305
  2. LEVOTHYROXINE SODIUM [Suspect]
     Dates: start: 20090305, end: 20090405
  3. LEVOTHYROXINE SODIUM [Suspect]
     Dates: start: 20090405

REACTIONS (8)
  - BLOOD SODIUM DECREASED [None]
  - COELIAC DISEASE [None]
  - DYSPHEMIA [None]
  - GASTRIC DISORDER [None]
  - MIGRAINE [None]
  - PERIPHERAL NERVE INJURY [None]
  - TRANSIENT ISCHAEMIC ATTACK [None]
  - URTICARIA [None]
